FAERS Safety Report 9280989 (Version 1)
Quarter: 2013Q2

REPORT INFORMATION
  Report Type: Spontaneous
  Country: US (occurrence: None)
  Receive Date: 20130508
  Receipt Date: 20130508
  Transmission Date: 20140414
  Serious: Yes (Hospitalization)
  Sender: FDA-Public Use
  Company Number: None

PATIENT
  Age: 45 Year
  Sex: Male
  Weight: 83.6 kg

DRUGS (1)
  1. CETUXIMAB [Suspect]

REACTIONS (3)
  - Decreased appetite [None]
  - Malnutrition [None]
  - Weight decreased [None]
